FAERS Safety Report 4478123-0 (Version None)
Quarter: 2004Q4

REPORT INFORMATION
  Report Type: 
  Country: None (occurrence: None)
  Receive Date: 20041018
  Receipt Date: 20041018
  Transmission Date: 20050328
  Serious: No
  Sender: FDA-Public Use
  Company Number: None

PATIENT
  Age: 80 Year
  Sex: Male
  Weight: 144.6975 kg

DRUGS (13)
  1. GATIFLOXACIN [Suspect]
     Indication: URINARY TRACT INFECTION
     Dosage: 200 MG PO DAILY
     Route: 048
     Dates: start: 20040716
  2. ALBUTEROL [Concomitant]
  3. IPRATROPIUM BROMIDE [Concomitant]
  4. SPIRONOLACTONE [Concomitant]
  5. SERTRALINE HCL [Concomitant]
  6. RANITIDINE [Concomitant]
  7. NITROGLYCERIN [Concomitant]
  8. GLYBURIDE [Concomitant]
  9. FUROSEMIDE [Concomitant]
  10. CALCIUM/VIT D [Concomitant]
  11. ATENOLOL [Concomitant]
  12. ASPIRIN [Concomitant]
  13. HYDROCODONE BITARTRATE AND ACETAMINOPHEN [Concomitant]

REACTIONS (3)
  - ASTHENIA [None]
  - BLOOD GLUCOSE DECREASED [None]
  - TREMOR [None]
